FAERS Safety Report 24665866 (Version 1)
Quarter: 2024Q4

REPORT INFORMATION
  Report Type: Spontaneous
  Country: FR (occurrence: FR)
  Receive Date: 20241126
  Receipt Date: 20241126
  Transmission Date: 20250114
  Serious: Yes (Other)
  Sender: FRESENIUS KABI
  Company Number: None

PATIENT
  Age: 59 Year
  Sex: Male
  Weight: 75 kg

DRUGS (11)
  1. CARBOPLATIN [Suspect]
     Active Substance: CARBOPLATIN
     Indication: Adenocarcinoma
     Dosage: ROUTE OF ADMINISTRATION: INTRAVENOUS
     Dates: start: 20231129
  2. CARBOPLATIN [Suspect]
     Active Substance: CARBOPLATIN
     Dosage: ROUTE OF ADMINISTRATION: INTRAVENOUS
     Dates: start: 202312
  3. CARBOPLATIN [Suspect]
     Active Substance: CARBOPLATIN
     Dosage: ROUTE OF ADMINISTRATION: INTRAVENOUS
     Dates: start: 202401
  4. CARBOPLATIN [Suspect]
     Active Substance: CARBOPLATIN
     Dosage: ROUTE OF ADMINISTRATION:: INTRAVENOUS
     Dates: start: 20240202
  5. PEMETREXED [Suspect]
     Active Substance: PEMETREXED
     Indication: Adenocarcinoma
     Dosage: ROUTE OF ADMINISTRATION: INTRAVENOUS
     Dates: start: 20231129, end: 20240412
  6. PEMBROLIZUMAB [Suspect]
     Active Substance: PEMBROLIZUMAB
     Indication: Adenocarcinoma
     Dosage: ROA: INTRAVENOUS
     Dates: start: 20231129, end: 20240412
  7. PREDNISONE [Suspect]
     Active Substance: PREDNISONE
     Indication: Premedication
     Dosage: ROA: ORAL
     Dates: start: 20231128
  8. EMEND [Suspect]
     Active Substance: APREPITANT
     Indication: Premedication
     Dosage: ROA: ORAL
     Dates: start: 20231129
  9. EMEND [Suspect]
     Active Substance: APREPITANT
     Dosage: D3 OF THE CURE?ROA: ORAL
  10. EMEND [Suspect]
     Active Substance: APREPITANT
     Dosage: D3 OF THE CURE?ROA: ORAL
  11. ONDANSETRON HYDROCHLORIDE [Suspect]
     Active Substance: ONDANSETRON HYDROCHLORIDE
     Indication: Prophylaxis of nausea and vomiting
     Dosage: DURING 5 DAYS AFTER CHEMO?ROA: ORAL
     Dates: start: 202311

REACTIONS (1)
  - Pulmonary embolism [Recovering/Resolving]

NARRATIVE: CASE EVENT DATE: 20240102
